FAERS Safety Report 11003034 (Version 2)
Quarter: 2015Q2

REPORT INFORMATION
  Report Type: Spontaneous
  Country: JP (occurrence: JP)
  Receive Date: 20150408
  Receipt Date: 20150505
  Transmission Date: 20150821
  Serious: Yes (Hospitalization, Other)
  Sender: FDA-Public Use
  Company Number: JP-UCBSA-2015002889

PATIENT
  Age: 33 Year
  Sex: Male

DRUGS (10)
  1. LAMICTAL [Concomitant]
     Active Substance: LAMOTRIGINE
     Dosage: DAILY DOSE: 325 MG
     Route: 048
     Dates: start: 20121227
  2. LAMICTAL [Concomitant]
     Active Substance: LAMOTRIGINE
     Dosage: DAILY DOSE: 400 MG
     Route: 048
     Dates: start: 20130302
  3. KEPPRA [Suspect]
     Active Substance: LEVETIRACETAM
     Dosage: 250 MG, 4X/DAY (QID)
     Route: 048
     Dates: start: 20140225
  4. LAMICTAL [Concomitant]
     Active Substance: LAMOTRIGINE
     Dosage: DAILY DOSE: 375 MG
     Route: 048
     Dates: start: 20130207, end: 2013
  5. MYSTAN [Concomitant]
     Active Substance: CLOBAZAM
     Indication: PRODUCT USED FOR UNKNOWN INDICATION
     Dosage: DAILY DOSE: 10 MG
     Route: 048
  6. LAMICTAL [Concomitant]
     Active Substance: LAMOTRIGINE
     Indication: PRODUCT USED FOR UNKNOWN INDICATION
     Dosage: DAILY DOSE: 25 MG
     Route: 048
     Dates: start: 20100306
  7. LENDORMIN [Concomitant]
     Active Substance: BROTIZOLAM
     Indication: PRODUCT USED FOR UNKNOWN INDICATION
     Dosage: 0.5 MG
     Route: 048
  8. LAMICTAL [Concomitant]
     Active Substance: LAMOTRIGINE
     Dosage: DAILY DOSE: 350 MG
     Route: 048
     Dates: start: 20130105, end: 2013
  9. KEPPRA [Suspect]
     Active Substance: LEVETIRACETAM
     Indication: EPILEPSY
     Dosage: 750 MG, ONCE DAILY (QD)
     Route: 048
     Dates: start: 20131204, end: 20140224
  10. MAINTATE [Concomitant]
     Active Substance: BISOPROLOL FUMARATE
     Indication: PRODUCT USED FOR UNKNOWN INDICATION
     Dosage: 5 MG
     Route: 048

REACTIONS (3)
  - Inappropriate schedule of drug administration [Unknown]
  - Irritability [Unknown]
  - Physical assault [Not Recovered/Not Resolved]

NARRATIVE: CASE EVENT DATE: 20140225
